FAERS Safety Report 14276746 (Version 1)
Quarter: 2017Q4

REPORT INFORMATION
  Report Type: Spontaneous
  Country: CH (occurrence: CH)
  Receive Date: 20171212
  Receipt Date: 20171212
  Transmission Date: 20180321
  Serious: Yes (Other)
  Sender: FDA-Public Use
  Company Number: CH-PFIZER INC-2017523609

PATIENT
  Age: 35 Year
  Sex: Female
  Weight: 88 kg

DRUGS (5)
  1. SEROQUEL [Concomitant]
     Active Substance: QUETIAPINE FUMARATE
     Indication: BIPOLAR DISORDER
     Dosage: 25 MG, DAILY
     Route: 048
     Dates: start: 2016, end: 20170120
  2. MINESSE [Suspect]
     Active Substance: ETHINYL ESTRADIOL\GESTODENE
     Indication: CONTRACEPTION
     Dosage: UNK
     Route: 048
     Dates: start: 2016, end: 20170120
  3. LITHIUM. [Concomitant]
     Active Substance: LITHIUM
     Indication: BIPOLAR DISORDER
     Dosage: UNK
     Route: 048
     Dates: start: 2016, end: 20170120
  4. CYTOTEC [Suspect]
     Active Substance: MISOPROSTOL
     Indication: GASTROENTERITIS
     Dosage: 400 UG, (2X 200UG) 1X/DAY (INTAKE OF 2 TABLETS AT ONCE DURING THE WEEK FOLLOWING CHRISTMAS)
     Route: 048
     Dates: start: 201612, end: 201612
  5. EUTHYROX [Concomitant]
     Active Substance: LEVOTHYROXINE SODIUM
     Indication: SECONDARY HYPOTHYROIDISM
     Dosage: 125 UG, UNK
     Route: 048
     Dates: start: 2016

REACTIONS (3)
  - Product use in unapproved indication [Unknown]
  - Drug ineffective [Unknown]
  - Unintended pregnancy [Unknown]

NARRATIVE: CASE EVENT DATE: 201612
